FAERS Safety Report 23145950 (Version 1)
Quarter: 2023Q4

REPORT INFORMATION
  Report Type: Spontaneous
  Country: US (occurrence: US)
  Receive Date: 20231104
  Receipt Date: 20231104
  Transmission Date: 20240109
  Serious: No
  Sender: FDA-Public Use
  Company Number: US-SUN PHARMACEUTICAL INDUSTRIES LTD-2023R1-405984

PATIENT
  Sex: Male

DRUGS (2)
  1. BUDESONIDE [Suspect]
     Active Substance: BUDESONIDE
     Indication: Product used for unknown indication
     Dosage: UNK
     Route: 065
  2. ARFORMOTEROL [Concomitant]
     Active Substance: ARFORMOTEROL
     Indication: Product used for unknown indication
     Dosage: UNK
     Route: 065

REACTIONS (3)
  - Poor quality product administered [Unknown]
  - Product quality issue [Unknown]
  - Drug ineffective [Unknown]
